FAERS Safety Report 4928056-8 (Version None)
Quarter: 2006Q1

REPORT INFORMATION
  Report Type: 
  Country: None (occurrence: None)
  Receive Date: 20060223
  Receipt Date: 20060210
  Transmission Date: 20060701
  Serious: Yes (Hospitalization)
  Sender: FDA-Public Use
  Company Number: 2005168630

PATIENT
  Age: 50 Year
  Sex: Female
  Weight: 47 kg

DRUGS (10)
  1. IRINOTECAN HCL [Suspect]
     Indication: GALLBLADDER CANCER
     Dosage: SEE IMAGE
     Route: 042
     Dates: start: 20050908, end: 20051013
  2. IRINOTECAN HCL [Suspect]
     Indication: GALLBLADDER CANCER
     Dosage: SEE IMAGE
     Route: 042
     Dates: start: 20051115, end: 20051130
  3. IRINOTECAN HCL [Suspect]
     Indication: GALLBLADDER CANCER
     Dosage: SEE IMAGE
     Route: 042
     Dates: start: 20040408
  4. IRINOTECAN HCL [Suspect]
     Indication: GALLBLADDER CANCER
     Dosage: SEE IMAGE
     Route: 042
     Dates: start: 20040513
  5. IRINOTECAN HCL [Suspect]
     Indication: GALLBLADDER CANCER
     Dosage: SEE IMAGE
     Route: 042
     Dates: start: 20040927
  6. IRINOTECAN HCL [Suspect]
     Indication: GALLBLADDER CANCER
     Dosage: SEE IMAGE
     Route: 042
     Dates: start: 20050404
  7. MUCOSTA (REBAMIPIDE) [Concomitant]
  8. MAGNESIUM OXIDE (MAGNESIUM OXIDE) [Concomitant]
  9. JUZENTAIHOTO (HERBAL EXTRACTS NOS) [Concomitant]
  10. FERRO-GRADUMET (FERROUS SULFATE) [Concomitant]

REACTIONS (10)
  - BILE DUCT STENOSIS [None]
  - BILIARY CYST [None]
  - BILIARY DILATATION [None]
  - CHOLANGITIS [None]
  - DRUG ERUPTION [None]
  - HEADACHE [None]
  - HEPATIC LESION [None]
  - MALAISE [None]
  - PERFORMANCE STATUS DECREASED [None]
  - PYREXIA [None]
